FAERS Safety Report 9922110 (Version 1)
Quarter: 2014Q1

REPORT INFORMATION
  Report Type: Spontaneous
  Country: US (occurrence: US)
  Receive Date: 20140225
  Receipt Date: 20140225
  Transmission Date: 20141002
  Serious: Yes (Life-Threatening, Hospitalization, Other)
  Sender: FDA-Public Use
  Company Number: US-ROXANE LABORATORIES, INC.-2014-RO-00246RO

PATIENT
  Age: 72 Year
  Sex: Male

DRUGS (9)
  1. LITHIUM CARBONATE [Suspect]
     Indication: BIPOLAR DISORDER
     Dosage: 450 MG
     Route: 065
  2. LITHIUM CARBONATE [Suspect]
     Dosage: 300 MG
     Route: 065
  3. LISINOPRIL [Suspect]
     Indication: PRODUCT USED FOR UNKNOWN INDICATION
     Route: 065
  4. ASPIRIN [Suspect]
     Indication: PRODUCT USED FOR UNKNOWN INDICATION
     Route: 065
  5. DULOXETINE [Concomitant]
     Route: 065
  6. OLANZAPINE [Concomitant]
     Route: 065
  7. PAROXETINE [Concomitant]
     Route: 065
  8. METFORMIN [Concomitant]
     Route: 065
  9. ARIPIPRAZOLE [Concomitant]
     Route: 065

REACTIONS (4)
  - Multi-organ disorder [Unknown]
  - Toxicity to various agents [Recovered/Resolved]
  - Pneumonia [Unknown]
  - Dehydration [Unknown]
